FAERS Safety Report 5316491-8 (Version None)
Quarter: 2007Q2

REPORT INFORMATION
  Report Type: 
  Country: None (occurrence: None)
  Receive Date: 20070430
  Receipt Date: 20070416
  Transmission Date: 20071010
  Serious: Yes (Death, Life-Threatening)
  Sender: FDA-Public Use
  Company Number: T200700427

PATIENT
  Age: 75 Year
  Sex: Male

DRUGS (2)
  1. OPTIRAY 160 [Suspect]
     Indication: COMPUTERISED TOMOGRAM
     Dosage: 125 ML, SINGLE, INTRAVENOUS
     Route: 042
     Dates: start: 20070404, end: 20070404
  2. OPTIRAY 160 [Suspect]

REACTIONS (5)
  - ERYTHEMA [None]
  - FEELING HOT [None]
  - LOSS OF CONSCIOUSNESS [None]
  - RESPIRATORY FAILURE [None]
  - SNEEZING [None]
